FAERS Safety Report 6074348-1 (Version None)
Quarter: 2009Q1

REPORT INFORMATION
  Report Type: 
  Country: None (occurrence: None)
  Receive Date: 20090211
  Receipt Date: 20090204
  Transmission Date: 20090719
  Serious: Yes (Hospitalization, Other)
  Sender: FDA-Public Use
  Company Number: JP-B.I. PHARMACEUTICALS,INC./RIDGEFIELD-2008-BP-18901NB

PATIENT
  Sex: Female
  Weight: 61.5 kg

DRUGS (6)
  1. MICARDIS [Suspect]
     Indication: HYPERTENSION
     Dosage: 20MG
     Route: 048
     Dates: start: 20061002, end: 20080112
  2. WARFARIN SODIUM [Concomitant]
     Dosage: 1MG
     Route: 048
     Dates: start: 20071001
  3. FURUSEMIDE [Concomitant]
     Indication: HYPERTENSION
     Dosage: .5G
     Route: 048
     Dates: start: 20071001
  4. ALDACTONE [Concomitant]
     Indication: HYPERTENSION
     Dosage: 25MG
     Route: 048
     Dates: start: 20071001
  5. HALCION [Concomitant]
     Dosage: .25MG
     Route: 048
  6. MYSLEE [Concomitant]
     Indication: PROPHYLAXIS
     Dosage: 5MG
     Route: 048
     Dates: start: 20060125

REACTIONS (17)
  - ASTHMA [None]
  - CARDIAC FAILURE [None]
  - DEEP VEIN THROMBOSIS [None]
  - ELECTROLYTE IMBALANCE [None]
  - GENERAL PHYSICAL HEALTH DETERIORATION [None]
  - ILEUS [None]
  - INFLAMMATION [None]
  - INTRACRANIAL ANEURYSM [None]
  - LOWER RESPIRATORY TRACT INFECTION [None]
  - LUNG DISORDER [None]
  - OEDEMA PERIPHERAL [None]
  - PRURITUS [None]
  - PYREXIA [None]
  - REFLUX OESOPHAGITIS [None]
  - SEPSIS [None]
  - UMBILICAL HERNIA [None]
  - UPPER RESPIRATORY TRACT INFECTION [None]
